FAERS Safety Report 23102960 (Version 1)
Quarter: 2023Q4

REPORT INFORMATION
  Report Type: Spontaneous
  Country: US (occurrence: US)
  Receive Date: 20231025
  Receipt Date: 20231025
  Transmission Date: 20240109
  Serious: Yes (Life-Threatening, Hospitalization, Other)
  Sender: FDA-Public Use
  Company Number: US-MLMSERVICE-20231004-4580039-1

PATIENT

DRUGS (1)
  1. CEFTRIAXONE [Suspect]
     Active Substance: CEFTRIAXONE\CEFTRIAXONE SODIUM
     Indication: Diverticulitis
     Dosage: 1 DOSAGE FORM, SINGLE
     Route: 065

REACTIONS (7)
  - Acute myocardial infarction [Recovering/Resolving]
  - Rash [Unknown]
  - Drug hypersensitivity [Recovering/Resolving]
  - Loss of consciousness [Recovering/Resolving]
  - Hypotension [Recovering/Resolving]
  - Acute coronary syndrome [Recovering/Resolving]
  - Ventricular hypokinesia [Recovering/Resolving]
